FAERS Safety Report 18860041 (Version 5)
Quarter: 2021Q1

REPORT INFORMATION
  Report Type: Spontaneous
  Country: ES (occurrence: ES)
  Receive Date: 20210208
  Receipt Date: 20210319
  Transmission Date: 20210420
  Serious: Yes (Life-Threatening, Other)
  Sender: FDA-Public Use
  Company Number: ES-PFIZER INC-2021107100

PATIENT
  Age: 53 Year
  Sex: Female

DRUGS (2)
  1. GABAPENTIN. [Suspect]
     Active Substance: GABAPENTIN
     Indication: NEURALGIA
     Dosage: UNK
  2. CLADRIBINE. [Suspect]
     Active Substance: CLADRIBINE
     Indication: MULTIPLE SCLEROSIS
     Dosage: UNK UNK, CYCLIC (SECOND DOSE OF THE FIRST CYCLE)
     Dates: start: 201912

REACTIONS (3)
  - Leukopenia [Unknown]
  - Lymphopenia [Not Recovered/Not Resolved]
  - Neutropenia [Recovered/Resolved]
